FAERS Safety Report 12793530 (Version 1)
Quarter: 2016Q3

REPORT INFORMATION
  Report Type: Spontaneous
  Country: US (occurrence: US)
  Receive Date: 20160929
  Receipt Date: 20160929
  Transmission Date: 20161109
  Serious: No
  Sender: FDA-Public Use
  Company Number: US-JNJFOC-20160818181

PATIENT
  Sex: Female

DRUGS (14)
  1. TYLENOL WITH CODEINE [Suspect]
     Active Substance: ACETAMINOPHEN\CODEINE PHOSPHATE
     Indication: PROCEDURAL PAIN
     Dosage: 1/2 PILL AFTER AND BEFORE SURGERY
     Route: 065
  2. ALEVE [Concomitant]
     Active Substance: NAPROXEN SODIUM
     Indication: MENSTRUAL DISORDER
     Route: 065
     Dates: start: 1989, end: 2013
  3. TYLENOL EXTRA STRENGTH [Concomitant]
     Active Substance: ACETAMINOPHEN
     Indication: MYALGIA
     Dosage: AS NEEDED 2 X DAILY
     Route: 065
  4. TYLENOL EXTRA STRENGTH [Concomitant]
     Active Substance: ACETAMINOPHEN
     Indication: OSTEOPOROSIS
     Dosage: AS NEEDED 2 X DAILY
     Route: 065
  5. ADVIL [Concomitant]
     Active Substance: IBUPROFEN
     Indication: EAR PAIN
     Dosage: STOP DATE 2013-2014
     Route: 065
     Dates: start: 1989
  6. ADVIL [Concomitant]
     Active Substance: IBUPROFEN
     Indication: BACK DISORDER
     Dosage: STOP DATE 2013-2014
     Route: 065
     Dates: start: 1989
  7. TYLENOL EXTRA STRENGTH [Concomitant]
     Active Substance: ACETAMINOPHEN
     Indication: HEADACHE
     Dosage: AS NEEDED 2 X DAILY
     Route: 065
  8. ALEVE [Concomitant]
     Active Substance: NAPROXEN SODIUM
     Indication: EAR PAIN
     Route: 065
     Dates: start: 1989, end: 2013
  9. ALEVE [Concomitant]
     Active Substance: NAPROXEN SODIUM
     Indication: BACK DISORDER
     Route: 065
     Dates: start: 1989, end: 2013
  10. TYLENOL WITH CODEINE [Suspect]
     Active Substance: ACETAMINOPHEN\CODEINE PHOSPHATE
     Indication: PROCEDURAL PAIN
     Route: 065
     Dates: start: 1989, end: 2015
  11. TYLENOL EXTRA STRENGTH [Concomitant]
     Active Substance: ACETAMINOPHEN
     Indication: MYALGIA
     Dosage: AS NEEDED 2 X DAILY
     Route: 065
  12. ALEVE [Concomitant]
     Active Substance: NAPROXEN SODIUM
     Indication: HEADACHE
     Route: 065
     Dates: start: 1989, end: 2013
  13. ADVIL [Concomitant]
     Active Substance: IBUPROFEN
     Indication: HEADACHE
     Dosage: STOP DATE 2013-2014
     Route: 065
     Dates: start: 1989
  14. ADVIL [Concomitant]
     Active Substance: IBUPROFEN
     Indication: MENSTRUAL DISORDER
     Dosage: STOP DATE 2013-2014
     Route: 065
     Dates: start: 1989

REACTIONS (2)
  - Wrong technique in product usage process [Unknown]
  - Abdominal discomfort [Unknown]
